FAERS Safety Report 5022097-0 (Version None)
Quarter: 2006Q2

REPORT INFORMATION
  Report Type: 
  Country: None (occurrence: None)
  Receive Date: 20060428
  Receipt Date: 20060316
  Transmission Date: 20061013
  Serious: No
  Sender: FDA-Public Use
  Company Number: COT_0495_2006

PATIENT
  Age: 69 Year
  Sex: Female
  Weight: 45.3597 kg

DRUGS (13)
  1. VENTAVIS [Suspect]
     Indication: PULMONARY HYPERTENSION
     Dosage: 5 MCG 6XD IH
     Route: 055
     Dates: start: 20060207
  2. SILDENAFIL CITRATE [Concomitant]
  3. ASCORBIC ACID [Concomitant]
  4. ZINC SULFATE [Concomitant]
  5. PREDNISONE [Concomitant]
  6. LORAZEPAM [Concomitant]
  7. RISPERDAL [Concomitant]
  8. ZYPREXA [Concomitant]
  9. REMERON [Concomitant]
  10. METOPROLOL TARTRATE [Concomitant]
  11. DIGOXIN [Concomitant]
  12. MULTIVITAMIN [Concomitant]
  13. DOCUSATE [Concomitant]

REACTIONS (4)
  - CONFUSIONAL STATE [None]
  - DELUSION [None]
  - SOMNOLENCE [None]
  - UNRESPONSIVE TO PAIN STIMULI [None]
